FAERS Safety Report 17041755 (Version 2)
Quarter: 2019Q4

REPORT INFORMATION
  Report Type: Spontaneous
  Country: CN (occurrence: CN)
  Receive Date: 20191118
  Receipt Date: 20191130
  Transmission Date: 20200122
  Serious: Yes (Other)
  Sender: FDA-Public Use
  Company Number: CN-ACCORD-159476

PATIENT
  Age: 63 Year
  Sex: Male
  Weight: 48 kg

DRUGS (5)
  1. BEVACIZUMAB. [Suspect]
     Active Substance: BEVACIZUMAB
     Indication: COLORECTAL ADENOCARCINOMA
     Dosage: DAY 1, 400 MG 23-DE-2016 TO 08-OCT-2017
     Route: 042
     Dates: start: 20171224, end: 20180207
  2. IRINOTECAN [Suspect]
     Active Substance: IRINOTECAN
     Indication: COLORECTAL ADENOCARCINOMA
     Dosage: DAY 1, EVERY 14 DAYS
     Route: 042
     Dates: start: 20171224, end: 20180207
  3. FLUOROURACIL. [Suspect]
     Active Substance: FLUOROURACIL
     Indication: COLORECTAL ADENOCARCINOMA
     Dosage: DAY 1, EVERY 14 DAYS
     Route: 042
     Dates: start: 201712, end: 201801
  4. FLUOROURACIL. [Suspect]
     Active Substance: FLUOROURACIL
     Indication: COLORECTAL ADENOCARCINOMA
     Dosage: BOLUS DAY 1, EVERY 14 DAYS?600 MG SAME DURATION
     Route: 042
     Dates: start: 20171224, end: 20180207
  5. FOLINIC ACID [Suspect]
     Active Substance: LEUCOVORIN
     Indication: COLORECTAL ADENOCARCINOMA
     Dosage: DAY 1, ONE CYCLE EVERY 2 WEEKS
     Route: 042
     Dates: start: 20171224, end: 20180107

REACTIONS (1)
  - Intestinal perforation [Recovered/Resolved]

NARRATIVE: CASE EVENT DATE: 20180213
